FAERS Safety Report 6699536-2 (Version None)
Quarter: 2010Q2

REPORT INFORMATION
  Report Type: 
  Country: None (occurrence: None)
  Receive Date: 20100427
  Receipt Date: 20100427
  Transmission Date: 20101027
  Serious: Yes (Life-Threatening, Hospitalization)
  Sender: FDA-Public Use
  Company Number: None

PATIENT
  Sex: Female
  Weight: 61.3 kg

DRUGS (4)
  1. FERRLECIT [Suspect]
     Indication: ANAEMIA
     Dosage: 125 MG ONCE A WEEK IV
     Route: 042
     Dates: start: 20100216, end: 20100220
  2. FERRLECIT [Suspect]
     Indication: RENAL FAILURE CHRONIC
     Dosage: 125 MG ONCE A WEEK IV
     Route: 042
     Dates: start: 20100216, end: 20100220
  3. FERRLECIT [Suspect]
     Indication: ANAEMIA
     Dosage: 125 MG ONCE A WEEK IV
     Route: 042
     Dates: start: 20100326, end: 20100331
  4. FERRLECIT [Suspect]
     Indication: RENAL FAILURE CHRONIC
     Dosage: 125 MG ONCE A WEEK IV
     Route: 042
     Dates: start: 20100326, end: 20100331

REACTIONS (5)
  - DYSPHAGIA [None]
  - INFUSION SITE ERYTHEMA [None]
  - LIP SWELLING [None]
  - OEDEMA PERIPHERAL [None]
  - THROAT TIGHTNESS [None]
